FAERS Safety Report 18971665 (Version 2)
Quarter: 2021Q2

REPORT INFORMATION
  Report Type: Spontaneous
  Country: US (occurrence: US)
  Receive Date: 20210305
  Receipt Date: 20210405
  Transmission Date: 20210717
  Serious: Yes (Hospitalization, Other)
  Sender: FDA-Public Use
  Company Number: US-ROCHE-2783257

PATIENT
  Age: 67 Year
  Sex: Female
  Weight: 113.95 kg

DRUGS (8)
  1. GABAPENTIN. [Concomitant]
     Active Substance: GABAPENTIN
     Dosage: 2 TABLET
  2. FLOMAX [Concomitant]
     Active Substance: TAMSULOSIN HYDROCHLORIDE
     Dosage: 1 CAPSULE
  3. ROPINIROLE. [Concomitant]
     Active Substance: ROPINIROLE
     Dosage: 1 TABLET IIN MORNING, 1 TABLET IN AFTERNOON AND 2 TABLET AT NIGHT
  4. CELEXA [Concomitant]
     Active Substance: CITALOPRAM HYDROBROMIDE
     Dosage: 1 TABLET
  5. OCREVUS [Suspect]
     Active Substance: OCRELIZUMAB
     Indication: MULTIPLE SCLEROSIS
     Route: 042
     Dates: start: 20200624, end: 20201127
  6. SYNTHROID [Concomitant]
     Active Substance: LEVOTHYROXINE SODIUM
     Dosage: 1 ATBLET
  7. BACLOFEN. [Concomitant]
     Active Substance: BACLOFEN
     Dosage: 1 TAB 3? 4 TIMES PER DAY
  8. ARMODAFINIL. [Concomitant]
     Active Substance: ARMODAFINIL
     Dosage: 1 TAB1

REACTIONS (4)
  - Abdominal pain upper [Recovered/Resolved]
  - Illness [Unknown]
  - Colitis [Unknown]
  - Weight decreased [Recovered/Resolved]

NARRATIVE: CASE EVENT DATE: 20200624
